FAERS Safety Report 10043673 (Version 1)
Quarter: 2014Q1

REPORT INFORMATION
  Report Type: Spontaneous
  Country: US (occurrence: None)
  Receive Date: 20140327
  Receipt Date: 20140327
  Transmission Date: 20141002
  Serious: Yes (Other)
  Sender: FDA-Public Use
  Company Number: None

PATIENT
  Age: 24 Year
  Sex: Male

DRUGS (1)
  1. CREST 3D WHITENING TOOTHPASTE [Suspect]
     Indication: DENTAL CARE
     Dates: start: 20140306

REACTIONS (2)
  - Foreign body [None]
  - Gingival disorder [None]
